FAERS Safety Report 5913319-X (Version None)
Quarter: 2008Q4

REPORT INFORMATION
  Report Type: 
  Country: None (occurrence: None)
  Receive Date: 20081008
  Receipt Date: 20081008
  Transmission Date: 20090506
  Serious: Yes (Hospitalization)
  Sender: FDA-Public Use
  Company Number: None

PATIENT
  Age: 22 Year
  Sex: Female

DRUGS (3)
  1. DILANTIN [Suspect]
     Indication: CONVULSION
     Dates: start: 20080620, end: 20080815
  2. DEPAKOTE [Suspect]
     Indication: CONVULSION
     Dates: start: 20080620, end: 20080815
  3. BACTRIM [Suspect]
     Indication: CELLULITIS
     Dates: start: 20080620, end: 20080815

REACTIONS (19)
  - ABDOMINAL PAIN LOWER [None]
  - ALANINE AMINOTRANSFERASE INCREASED [None]
  - ASPARTATE AMINOTRANSFERASE INCREASED [None]
  - BLOOD ALKALINE PHOSPHATASE INCREASED [None]
  - BLOOD BILIRUBIN INCREASED [None]
  - CELLULITIS [None]
  - CHOLECYSTITIS [None]
  - CHOLESTASIS [None]
  - DRUG HYPERSENSITIVITY [None]
  - EOSINOPHILIA [None]
  - HYPERTENSION [None]
  - LIP DISORDER [None]
  - MUCOUS MEMBRANE DISORDER [None]
  - PALATAL DISORDER [None]
  - PYREXIA [None]
  - RASH MACULO-PAPULAR [None]
  - RASH MORBILLIFORM [None]
  - RASH PAPULAR [None]
  - STEVENS-JOHNSON SYNDROME [None]
